FAERS Safety Report 5370116-4 (Version None)
Quarter: 2007Q2

REPORT INFORMATION
  Report Type: 
  Country: None (occurrence: None)
  Receive Date: 20070614
  Receipt Date: 20070321
  Transmission Date: 20071010
  Serious: Yes (Other)
  Sender: FDA-Public Use
  Company Number: BDI-009259

PATIENT
  Age: 38 Year
  Sex: Male
  Weight: 100 kg

DRUGS (4)
  1. MULTIHANCE [Suspect]
     Indication: HYPOTONIA
     Dosage: 20 ML ONCE IV
     Route: 042
     Dates: start: 20070320, end: 20070320
  2. MULTIHANCE [Suspect]
     Indication: NUCLEAR MAGNETIC RESONANCE IMAGING
     Dosage: 20 ML ONCE IV
     Route: 042
     Dates: start: 20070320, end: 20070320
  3. DILANTIN KAPSEAL [Concomitant]
  4. ALBUTEROL [Concomitant]

REACTIONS (1)
  - HYPERSENSITIVITY [None]
